FAERS Safety Report 6565977-7 (Version None)
Quarter: 2010Q1

REPORT INFORMATION
  Report Type: 
  Country: None (occurrence: None)
  Receive Date: 20100201
  Receipt Date: 20091124
  Transmission Date: 20100710
  Serious: No
  Sender: FDA-Public Use
  Company Number: US-ALLERGAN-0916414US

PATIENT
  Sex: Female

DRUGS (3)
  1. ACUVAIL [Suspect]
     Indication: PROPHYLAXIS
     Dosage: 1 GTT, BID
     Route: 047
  2. TOBRAMYCIN [Concomitant]
  3. DEXAMETHASONE [Concomitant]

REACTIONS (2)
  - EYE IRRITATION [None]
  - EYE PAIN [None]
